FAERS Safety Report 6526398-6 (Version None)
Quarter: 2009Q4

REPORT INFORMATION
  Report Type: 
  Country: None (occurrence: None)
  Receive Date: 20091229
  Receipt Date: 20091209
  Transmission Date: 20100525
  Serious: Yes (Hospitalization)
  Sender: FDA-Public Use
  Company Number: 002897

PATIENT
  Age: 38 Year
  Sex: Female
  Weight: 90.9 kg

DRUGS (9)
  1. CIMZIA [Suspect]
     Dosage: (SUBCUTANEOUS)
     Route: 058
     Dates: start: 20090520, end: 20090901
  2. COUMADIN [Concomitant]
  3. LASIX [Concomitant]
  4. FLAGYL [Concomitant]
  5. APO-CIPROFLOX [Concomitant]
  6. AMITRIPTYLINE [Concomitant]
  7. POTASSIUM [Concomitant]
  8. PERCOCET [Concomitant]
  9. FENTANYL-100 [Concomitant]

REACTIONS (3)
  - ANAL FISTULA [None]
  - CONDITION AGGRAVATED [None]
  - THROMBOSIS [None]
